FAERS Safety Report 9767518 (Version 1)
Quarter: 2013Q4

REPORT INFORMATION
  Report Type: Spontaneous
  Country: US (occurrence: None)
  Receive Date: 20131213
  Receipt Date: 20131213
  Transmission Date: 20140711
  Serious: Yes (Other)
  Sender: FDA-Public Use
  Company Number: 2013SA031605

PATIENT
  Sex: Female

DRUGS (1)
  1. ICY HOT NO MESS [Suspect]
     Indication: PRODUCT USED FOR UNKNOWN INDICATION
     Route: 061

REACTIONS (6)
  - Scar [None]
  - Application site burn [None]
  - Chemical injury [None]
  - Application site erythema [None]
  - Skin discolouration [None]
  - Pain [None]
